FAERS Safety Report 15726630 (Version 1)
Quarter: 2018Q4

REPORT INFORMATION
  Report Type: Spontaneous
  Country: US (occurrence: US)
  Receive Date: 20181217
  Receipt Date: 20181217
  Transmission Date: 20190205
  Serious: No
  Sender: FDA-Public Use
  Company Number: US-NOVOPROD-595943

PATIENT
  Age: 56 Year
  Sex: Female
  Weight: 91.16 kg

DRUGS (1)
  1. LEVEMIR [Suspect]
     Active Substance: INSULIN DETEMIR
     Indication: DIABETES MELLITUS MANAGEMENT
     Dosage: UNK
     Route: 058
     Dates: start: 20180403

REACTIONS (3)
  - Neuropathy peripheral [Not Recovered/Not Resolved]
  - Product quality issue [Not Recovered/Not Resolved]
  - Headache [Not Recovered/Not Resolved]

NARRATIVE: CASE EVENT DATE: 20180411
